FAERS Safety Report 10607692 (Version 2)
Quarter: 2014Q4

REPORT INFORMATION
  Report Type: Spontaneous
  Country: US (occurrence: US)
  Receive Date: 20141125
  Receipt Date: 20141212
  Transmission Date: 20150529
  Serious: Yes (Hospitalization, Disabling)
  Sender: FDA-Public Use
  Company Number: US-ACTELION-A-US2014-108549

PATIENT
  Age: 77 Year
  Sex: Female

DRUGS (12)
  1. FOLIC ACID. [Concomitant]
     Active Substance: FOLIC ACID
  2. HYDROXYUREA. [Concomitant]
     Active Substance: HYDROXYUREA
  3. FISH OIL [Concomitant]
     Active Substance: FISH OIL
  4. OPSUMIT [Suspect]
     Active Substance: MACITENTAN
     Indication: PULMONARY ARTERIAL HYPERTENSION
     Dosage: 10 MG, QD
     Route: 048
     Dates: start: 20140414
  5. VITAMIN D [Concomitant]
     Active Substance: CHOLECALCIFEROL
  6. ATORVASTATIN CALCIUM. [Concomitant]
     Active Substance: ATORVASTATIN CALCIUM
  7. HYDROCHLOROTHIAZIDE. [Concomitant]
     Active Substance: HYDROCHLOROTHIAZIDE
  8. LOSARTAN [Concomitant]
     Active Substance: LOSARTAN
  9. ASPIRIN. [Concomitant]
     Active Substance: ASPIRIN
  10. PREDNISONE. [Concomitant]
     Active Substance: PREDNISONE
  11. METHOTREXATE [Concomitant]
     Active Substance: METHOTREXATE
  12. METOPROLOL [Concomitant]
     Active Substance: METOPROLOL

REACTIONS (2)
  - Pulmonary embolism [Recovering/Resolving]
  - Incisional hernia [Recovered/Resolved]

NARRATIVE: CASE EVENT DATE: 20141111
